FAERS Safety Report 4639240-5 (Version None)
Quarter: 2005Q2

REPORT INFORMATION
  Report Type: 
  Country: None (occurrence: None)
  Receive Date: 20050418
  Receipt Date: 20050408
  Transmission Date: 20051028
  Serious: No
  Sender: FDA-Public Use
  Company Number: 2005-127289-NL

PATIENT
  Age: 79 Year
  Sex: Male

DRUGS (7)
  1. MIRTAZAPINE [Suspect]
     Indication: DEPRESSION
     Dosage: 45 MG ORAL
     Route: 048
     Dates: end: 20050228
  2. ATENOLOL [Concomitant]
  3. SIMVASTATIN [Concomitant]
  4. CLOPIDOGREL [Concomitant]
  5. PERINDOPRIL [Concomitant]
  6. HYDROXOCOBALAMIN [Concomitant]
  7. HYDROXYZINE [Concomitant]

REACTIONS (1)
  - HYPONATRAEMIA [None]
